FAERS Safety Report 9505237 (Version 1)
Quarter: 2013Q1

REPORT INFORMATION
  Report Type: Spontaneous
  Country: US (occurrence: None)
  Receive Date: 20130225
  Receipt Date: 20130225
  Transmission Date: 20140127
  Serious: No
  Sender: FDA-Public Use
  Company Number: 368582

PATIENT
  Age: 73 Year
  Sex: Male

DRUGS (2)
  1. VICTOZA [Suspect]
     Indication: TYPE 2 DIABETES MELLITUS
     Route: 058
     Dates: start: 20121218
  2. NEXIUM (ESOMEPRAZOLE MAGNESIUM) [Concomitant]

REACTIONS (2)
  - Abdominal discomfort [None]
  - Gastrooesophageal reflux disease [None]
